FAERS Safety Report 16438637 (Version 1)
Quarter: 2019Q2

REPORT INFORMATION
  Report Type: Report from Study
  Country: IT (occurrence: IT)
  Receive Date: 20190617
  Receipt Date: 20190617
  Transmission Date: 20190711
  Serious: Yes (Death, Other)
  Sender: FDA-Public Use
  Company Number: IT-ACCORD-133075

PATIENT

DRUGS (2)
  1. BENDAMUSTINE/BENDAMUSTINE HYDROCHLORIDE [Suspect]
     Active Substance: BENDAMUSTINE HYDROCHLORIDE
     Indication: HODGKIN^S DISEASE
     Dosage: (ON DAYS 1-2 EVERY 28 DAYS AS SINGLE AGENT) CYCLIC
     Route: 042
  2. ADCETRIS [Suspect]
     Active Substance: BRENTUXIMAB VEDOTIN
     Indication: HODGKIN^S DISEASE
     Dosage: (30-MIN INFUSION IN 3-WEEK CYCLES FOR 4 CYCLES)
     Route: 042

REACTIONS (3)
  - Off label use [Unknown]
  - Bladder neoplasm [Unknown]
  - Death [Fatal]
